FAERS Safety Report 19900303 (Version 1)
Quarter: 2021Q3

REPORT INFORMATION
  Report Type: Spontaneous
  Country: IN (occurrence: IN)
  Receive Date: 20210930
  Receipt Date: 20210930
  Transmission Date: 20211014
  Serious: Yes (Hospitalization)
  Sender: FDA-Public Use
  Company Number: IN-MYLANLABS-2021M1067273

PATIENT
  Age: 38 Year
  Sex: Male

DRUGS (10)
  1. PREGABALIN. [Suspect]
     Active Substance: PREGABALIN
     Indication: LATERAL MEDULLARY SYNDROME
  2. AMITRIPTYLINE [Suspect]
     Active Substance: AMITRIPTYLINE
     Indication: SYMPTOMATIC TREATMENT
     Dosage: UNK
     Route: 065
  3. PARACETAMOL [Suspect]
     Active Substance: ACETAMINOPHEN
     Indication: SYMPTOMATIC TREATMENT
     Dosage: UNK
     Route: 065
  4. DICLOFENAC [Suspect]
     Active Substance: DICLOFENAC
     Indication: LATERAL MEDULLARY SYNDROME
  5. PARACETAMOL [Suspect]
     Active Substance: ACETAMINOPHEN
     Indication: LATERAL MEDULLARY SYNDROME
  6. DICLOFENAC [Suspect]
     Active Substance: DICLOFENAC
     Indication: SYMPTOMATIC TREATMENT
     Dosage: UNK
     Route: 065
  7. ASPIRIN                            /00002701/ [Concomitant]
     Active Substance: ASPIRIN
     Indication: LATERAL MEDULLARY SYNDROME
     Dosage: UNK
     Route: 065
  8. AMITRIPTYLINE [Suspect]
     Active Substance: AMITRIPTYLINE
     Indication: LATERAL MEDULLARY SYNDROME
  9. PREGABALIN. [Suspect]
     Active Substance: PREGABALIN
     Indication: SYMPTOMATIC TREATMENT
     Dosage: UNK
     Route: 065
  10. ATORVASTATIN [Concomitant]
     Active Substance: ATORVASTATIN
     Indication: LATERAL MEDULLARY SYNDROME
     Dosage: UNK
     Route: 065

REACTIONS (1)
  - Drug ineffective [Unknown]
